FAERS Safety Report 4562419-8 (Version None)
Quarter: 2005Q1

REPORT INFORMATION
  Report Type: 
  Country: None (occurrence: None)
  Receive Date: 20050113
  Receipt Date: 20050113
  Transmission Date: 20050727
  Serious: Yes (Other)
  Sender: FDA-Public Use
  Company Number: None

PATIENT
  Sex: Female
  Weight: 116.5744 kg

DRUGS (1)
  1. PHENYTOIN [Suspect]
     Indication: CONVULSION
     Dosage: 100 MG ONE PO BID
     Route: 048
     Dates: start: 20040506, end: 20040907

REACTIONS (2)
  - AURA [None]
  - PHARMACEUTICAL PRODUCT COMPLAINT [None]
